FAERS Safety Report 8410564-9 (Version None)
Quarter: 2012Q2

REPORT INFORMATION
  Report Type: 
  Country: None (occurrence: None)
  Receive Date: 20120605
  Receipt Date: 20120530
  Transmission Date: 20120825
  Serious: No
  Sender: FDA-Public Use
  Company Number: US-PFIZER INC-2012130543

PATIENT
  Sex: Male
  Weight: 91.2 kg

DRUGS (6)
  1. LIPITOR [Suspect]
     Dosage: 20 MG, DAILY
     Route: 048
     Dates: start: 20120501, end: 20120523
  2. ACETYLSALICYLIC ACID SRT [Suspect]
     Dosage: UNK
     Dates: end: 20120501
  3. PLAVIX [Concomitant]
     Indication: MYOCARDIAL INFARCTION
     Dosage: 75 MG, DAILY
     Route: 048
  4. ATENOLOL [Concomitant]
     Indication: MYOCARDIAL INFARCTION
     Dosage: 25 MG, 2X/DAY
  5. LIPITOR [Suspect]
     Dosage: 20 MG, DAILY
     Route: 048
     Dates: start: 20120101, end: 20120401
  6. LOVASTATIN [Suspect]
     Dosage: UNK
     Dates: start: 20120101, end: 20120101

REACTIONS (5)
  - URTICARIA [None]
  - PRURITUS [None]
  - LOW DENSITY LIPOPROTEIN INCREASED [None]
  - LIP SWELLING [None]
  - TOOTHACHE [None]
